FAERS Safety Report 14204606 (Version 4)
Quarter: 2019Q2

REPORT INFORMATION
  Report Type: Spontaneous
  Country: US (occurrence: US)
  Receive Date: 20171120
  Receipt Date: 20190416
  Transmission Date: 20190711
  Serious: No
  Sender: FDA-Public Use
  Company Number: US-PFIZER INC-2017494517

PATIENT
  Age: 65 Year
  Sex: Female
  Weight: 99.77 kg

DRUGS (16)
  1. DOCETAXEL. [Suspect]
     Active Substance: DOCETAXEL
     Indication: BREAST CANCER FEMALE
     Dosage: 158 MG (CYCLIC, EVERY THREE WEEKS FOR FIRST 03 CYCLES)
     Dates: start: 20120731
  2. VITAMIN D3 [Concomitant]
     Active Substance: CHOLECALCIFEROL
     Dosage: UNK
     Dates: start: 200507, end: 201207
  3. DOCETAXEL. [Suspect]
     Active Substance: DOCETAXEL
     Dosage: 137 MG, (CYCLIC, EVERY THREE WEEKS FOR 05TH AND 06TH CYCLES)
     Dates: end: 20121113
  4. HERCEPTIN [Concomitant]
     Active Substance: TRASTUZUMAB
     Indication: CHEMOTHERAPY
     Dosage: UNK UNK, CYCLIC
  5. DOCETAXEL SANDOZ [Suspect]
     Active Substance: DOCETAXEL
     Indication: BREAST CANCER FEMALE
     Dosage: 158 MG (CYCLIC, EVERY THREE WEEKS FOR FIRST 03 CYCLES)
     Dates: start: 20120731
  6. DOCETAXEL SANDOZ [Suspect]
     Active Substance: DOCETAXEL
     Dosage: 137 MG, (CYCLIC, EVERY THREE WEEKS FOR 05TH AND 06TH CYCLES)
     Dates: end: 20121113
  7. TAXOTERE [Suspect]
     Active Substance: DOCETAXEL
     Indication: BREAST CANCER FEMALE
     Dosage: 158 MG, (CYCLIC, EVERY THREE WEEKS FOR FIRST 03 CYCLES)
     Dates: start: 20120731
  8. METOPROLOL. [Concomitant]
     Active Substance: METOPROLOL
     Dosage: UNK
     Dates: start: 200507, end: 201207
  9. TAXOTERE [Suspect]
     Active Substance: DOCETAXEL
     Dosage: 137 MG, (CYCLIC, EVERY THREE WEEKS FOR 05TH AND 06TH CYCLES)
     Dates: end: 20121113
  10. ASPIRIN. [Concomitant]
     Active Substance: ASPIRIN
     Dosage: UNK
     Dates: start: 200507, end: 201207
  11. DOCETAXEL SANDOZ [Suspect]
     Active Substance: DOCETAXEL
     Dosage: 138 MG, (CYCLIC, EVERY THREE WEEKS FOR 04TH CYCLE)
  12. TAXOTERE [Suspect]
     Active Substance: DOCETAXEL
     Dosage: 138 MG, (CYCLIC, EVERY THREE WEEKS FOR 04TH CYCLE)
  13. CENTRUM SILVER [Concomitant]
     Active Substance: MINERALS\VITAMINS
     Dosage: UNK
     Dates: start: 200507, end: 201207
  14. PARAPLATIN [Concomitant]
     Active Substance: CARBOPLATIN
     Indication: CHEMOTHERAPY
     Dosage: UNK UNK, CYCLIC
  15. DOCETAXEL. [Suspect]
     Active Substance: DOCETAXEL
     Dosage: 138 MG, (CYCLIC, EVERY THREE WEEKS FOR 04TH CYCLE)
  16. NORVASC [Concomitant]
     Active Substance: AMLODIPINE BESYLATE
     Dosage: UNK
     Dates: start: 200507, end: 201207

REACTIONS (5)
  - Alopecia [Not Recovered/Not Resolved]
  - Hair colour changes [Not Recovered/Not Resolved]
  - Hair texture abnormal [Not Recovered/Not Resolved]
  - Madarosis [Not Recovered/Not Resolved]
  - Hair disorder [Not Recovered/Not Resolved]

NARRATIVE: CASE EVENT DATE: 201305
